FAERS Safety Report 5792506-8 (Version None)
Quarter: 2008Q2

REPORT INFORMATION
  Report Type: 
  Country: None (occurrence: None)
  Receive Date: 20080626
  Receipt Date: 20080617
  Transmission Date: 20081010
  Serious: Yes (Disabling)
  Sender: FDA-Public Use
  Company Number: CA-MERCK-0806CAN00127

PATIENT
  Age: 15 Year
  Sex: Male

DRUGS (2)
  1. SINGULAIR [Suspect]
     Route: 048
     Dates: start: 20030101, end: 20080401
  2. BUDESONIDE [Suspect]
     Route: 065
     Dates: start: 20030101, end: 20080401

REACTIONS (1)
  - ACUTE PSYCHOSIS [None]
